FAERS Safety Report 5225997-1 (Version None)
Quarter: 2007Q1

REPORT INFORMATION
  Report Type: 
  Country: None (occurrence: None)
  Receive Date: 20070201
  Receipt Date: 20070125
  Transmission Date: 20070707
  Serious: Yes (Hospitalization)
  Sender: FDA-Public Use
  Company Number: US-AVENTIS-200710609US

PATIENT
  Age: 16 Year
  Sex: Male

DRUGS (8)
  1. LOVENOX [Suspect]
     Indication: DEEP VEIN THROMBOSIS
     Route: 058
     Dates: start: 20061109, end: 20061117
  2. LOVENOX [Suspect]
     Route: 058
     Dates: start: 20061109, end: 20061117
  3. IXABEPILONE [Suspect]
     Indication: NEURILEMMOMA MALIGNANT
     Dates: start: 20061109, end: 20061113
  4. NEURONTIN [Concomitant]
     Dosage: DOSE: UNK
  5. ZANTAC [Concomitant]
     Dosage: DOSE: UNK
  6. ZOLOFT [Concomitant]
     Dosage: DOSE: UNK
  7. COLACE [Concomitant]
     Dosage: DOSE: UNK
  8. FENTANYL [Concomitant]
     Dosage: DOSE: UNK

REACTIONS (7)
  - CEREBRAL HAEMORRHAGE [None]
  - CHEST PAIN [None]
  - CONVULSION [None]
  - DISORIENTATION [None]
  - DYSARTHRIA [None]
  - HEADACHE [None]
  - VOMITING [None]
